FAERS Safety Report 4335003-9 (Version None)
Quarter: 2004Q2

REPORT INFORMATION
  Report Type: 
  Country: None (occurrence: None)
  Receive Date: 20040408
  Receipt Date: 20040330
  Transmission Date: 20050107
  Serious: Yes (Other)
  Sender: FDA-Public Use
  Company Number: FR-ROCHE-363436

PATIENT
  Age: 30 Year
  Sex: Female

DRUGS (2)
  1. SORIATANE [Suspect]
     Route: 065
     Dates: start: 20030115
  2. ORAL CONTRACEPTIVE NOS [Concomitant]
     Route: 048

REACTIONS (2)
  - NO ADVERSE EFFECT [None]
  - PREGNANCY [None]
